FAERS Safety Report 7009699-7 (Version None)
Quarter: 2010Q3

REPORT INFORMATION
  Report Type: 
  Country: None (occurrence: None)
  Receive Date: 20100923
  Receipt Date: 20100914
  Transmission Date: 20110219
  Serious: Yes (Other)
  Sender: FDA-Public Use
  Company Number: JP-PFIZER INC-2010116245

PATIENT
  Age: 74 Year
  Sex: Male

DRUGS (6)
  1. NORVASC [Suspect]
     Indication: HYPERTENSION
     Dosage: 2.5 MG, 1X/DAY
     Route: 048
     Dates: end: 20090715
  2. MENESIT [Concomitant]
     Indication: PARKINSON'S DISEASE
     Dosage: 150 MG, 2X/DAY
     Route: 048
     Dates: end: 20080530
  3. MENESIT [Concomitant]
     Dosage: 100 MG, 2X/DAY
     Route: 048
     Dates: start: 20080530
  4. SELEGILINE [Concomitant]
     Indication: PARKINSON'S DISEASE
     Dosage: 2.5 MG, 1X/DAY
     Route: 048
     Dates: end: 20080530
  5. SEDIEL [Concomitant]
     Indication: PARKINSON'S DISEASE
     Dosage: 20 MG, 2X/DAY
     Route: 048
     Dates: end: 20080530
  6. SEDIEL [Concomitant]
     Dosage: 10 MG, 3X/DAY
     Dates: start: 20080530

REACTIONS (1)
  - PARKINSONISM [None]
